FAERS Safety Report 4504042-7 (Version None)
Quarter: 2004Q3

REPORT INFORMATION
  Report Type: 
  Country: None (occurrence: None)
  Receive Date: 20040927
  Receipt Date: 20040628
  Transmission Date: 20050211
  Serious: No
  Sender: FDA-Public Use
  Company Number: USA040671280

PATIENT
  Age: 11 Year
  Sex: Male
  Weight: 39 kg

DRUGS (3)
  1. STRATTERA [Suspect]
     Indication: ATTENTION DEFICIT/HYPERACTIVITY DISORDER
     Dosage: 40 MG
     Dates: start: 20030101
  2. ADDERALL 10 [Concomitant]
  3. RISPERDAL [Concomitant]

REACTIONS (1)
  - TIC [None]
